FAERS Safety Report 9375300 (Version 1)
Quarter: 2013Q2

REPORT INFORMATION
  Report Type: Spontaneous
  Country: DE (occurrence: DE)
  Receive Date: 20130628
  Receipt Date: 20130628
  Transmission Date: 20140414
  Serious: Yes (Other)
  Sender: FDA-Public Use
  Company Number: DE-TEVA-414627GER

PATIENT
  Age: 60 Year
  Sex: Male

DRUGS (3)
  1. SALBUTAMOL [Suspect]
     Dates: start: 2013, end: 2013
  2. SALBUTAMOL-RATIOPHARM N DOSIERAEROSOL [Suspect]
     Dates: end: 2013
  3. SALBUTAMOL-RATIOPHARM N DOSIERAEROSOL [Suspect]
     Dates: start: 2013

REACTIONS (4)
  - Drug dependence [Not Recovered/Not Resolved]
  - Nausea [Unknown]
  - Headache [Unknown]
  - Product substitution issue [Unknown]
